FAERS Safety Report 10426803 (Version 1)
Quarter: 2014Q3

REPORT INFORMATION
  Report Type: Spontaneous
  Country: US (occurrence: US)
  Receive Date: 20140903
  Receipt Date: 20140903
  Transmission Date: 20150326
  Serious: No
  Sender: FDA-Public Use
  Company Number: US-BANPHARM-20131620

PATIENT
  Age: 90 Year
  Sex: Female
  Weight: 48.08 kg

DRUGS (3)
  1. ZYRTEC [Suspect]
     Active Substance: CETIRIZINE HYDROCHLORIDE
     Indication: HYPERSENSITIVITY
     Dosage: 1 DF, QD,
     Route: 048
     Dates: start: 20130812
  2. COUMADIN [Concomitant]
     Active Substance: WARFARIN SODIUM
     Dosage: ONCE DAILY,
  3. FISH OIL/OMEGA 3 [Concomitant]
     Dosage: DAILY,

REACTIONS (1)
  - Dysphagia [Recovering/Resolving]

NARRATIVE: CASE EVENT DATE: 20130812
